FAERS Safety Report 8139202-X (Version None)
Quarter: 2012Q1

REPORT INFORMATION
  Report Type: 
  Country: None (occurrence: None)
  Receive Date: 20120215
  Receipt Date: 20120208
  Transmission Date: 20120608
  Serious: Yes (Other)
  Sender: FDA-Public Use
  Company Number: AR-ABBOTT-12P-007-0903435-00

PATIENT
  Sex: Female

DRUGS (1)
  1. HUMIRA [Suspect]
     Indication: RHEUMATOID ARTHRITIS
     Route: 058
     Dates: start: 20110321

REACTIONS (5)
  - VOMITING [None]
  - DIARRHOEA [None]
  - PYREXIA [None]
  - UNEVALUABLE EVENT [None]
  - BACTERIAL INFECTION [None]
